FAERS Safety Report 26155070 (Version 1)
Quarter: 2025Q4

REPORT INFORMATION
  Report Type: Report from Study
  Country: US (occurrence: US)
  Receive Date: 20251215
  Receipt Date: 20251215
  Transmission Date: 20260118
  Serious: Yes (Other)
  Sender: ALEXION PHARMACEUTICALS
  Company Number: US-AstraZeneca-CH-00990559A

PATIENT
  Age: 58 Year
  Sex: Female
  Weight: 54.422 kg

DRUGS (7)
  1. OSIMERTINIB [Suspect]
     Active Substance: OSIMERTINIB
     Dosage: 80 MILLIGRAM, QD
     Route: 061
     Dates: start: 2019
  2. ESOMEPRAZOLE [Concomitant]
     Active Substance: ESOMEPRAZOLE
     Dosage: UNK
     Route: 065
  3. ALIGN [Concomitant]
     Active Substance: BIFIDOBACTERIUM LONGUM SUBSP. INFANTIS
     Indication: Irritable bowel syndrome
     Dosage: UNK
     Route: 065
  4. VITAMIN D NOS [Concomitant]
     Active Substance: CHOLECALCIFEROL\ERGOCALCIFEROL
     Dosage: UNK
     Route: 065
  5. CALCIUM [Concomitant]
     Active Substance: CALCIUM
     Dosage: UNK
     Route: 065
  6. MACROBID [Concomitant]
     Active Substance: NITROFURANTOIN\NITROFURANTOIN MONOHYDRATE
     Dosage: UNK
     Route: 065
  7. VEOZAH [Concomitant]
     Active Substance: FEZOLINETANT
     Dosage: UNK
     Route: 065

REACTIONS (5)
  - Barrett^s oesophagus [Recovered/Resolved]
  - Cardiac flutter [Recovered/Resolved]
  - Lacrimation increased [Recovered/Resolved]
  - Skin odour abnormal [Recovered/Resolved]
  - Menopausal symptoms [Unknown]

NARRATIVE: CASE EVENT DATE: 20250101
